FAERS Safety Report 6875466-8 (Version None)
Quarter: 2010Q3

REPORT INFORMATION
  Report Type: 
  Country: None (occurrence: None)
  Receive Date: 20100727
  Receipt Date: 20100715
  Transmission Date: 20110219
  Serious: Yes (Hospitalization)
  Sender: FDA-Public Use
  Company Number: US-JNJFOC-20100505079

PATIENT
  Sex: Male
  Weight: 40.82 kg

DRUGS (5)
  1. CHILDREN'S MOTRIN [Suspect]
     Route: 048
  2. CHILDREN'S MOTRIN [Suspect]
     Indication: SINUS DISORDER
     Route: 048
  3. CHILDREN'S TYLENOL PLUS MULTI-SYMPTOM COLD [Suspect]
     Indication: SINUS DISORDER
     Route: 048
  4. CHILDREN'S ZYRTEC ALLERGY [Suspect]
     Indication: SINUS DISORDER
  5. CHILDREN'S ZYRTEC ALLERGY [Suspect]
     Indication: MULTIPLE ALLERGIES

REACTIONS (7)
  - BACK PAIN [None]
  - CLOSTRIDIAL INFECTION [None]
  - IRON DEFICIENCY ANAEMIA [None]
  - PRODUCT CONTAMINATION [None]
  - RED BLOOD CELL SEDIMENTATION RATE INCREASED [None]
  - TENDON PAIN [None]
  - WEIGHT DECREASED [None]
